FAERS Safety Report 22097740 (Version 2)
Quarter: 2023Q1

REPORT INFORMATION
  Report Type: Spontaneous
  Country: US (occurrence: US)
  Receive Date: 20230315
  Receipt Date: 20230315
  Transmission Date: 20230417
  Serious: Yes (Disabling)
  Sender: FDA-Public Use
  Company Number: US-PFIZER INC-PV202300047568

PATIENT
  Age: 63 Year
  Sex: Female

DRUGS (26)
  1. IBRANCE [Suspect]
     Active Substance: PALBOCICLIB
     Dosage: 125 MG, CYCLIC (1 TABLET DAILY FOR 21 DAYS ON AND 7 DAYS OFF)
     Route: 048
     Dates: start: 20220411, end: 20230309
  2. IBRANCE [Suspect]
     Active Substance: PALBOCICLIB
     Dosage: 125 MG, CYCLIC (1 TABLET DAILY FOR 21 DAYS ON AND 7 DAYS OFF)
     Route: 048
     Dates: start: 20221104, end: 20230309
  3. PREGABALIN [Concomitant]
     Active Substance: PREGABALIN
     Dosage: 25 MG
  4. BIOTIN [Concomitant]
     Active Substance: BIOTIN
     Dosage: 10000 UG
  5. BUPROPION [Concomitant]
     Active Substance: BUPROPION
     Dosage: 100 MG
  6. ASPIRIN\BUTALBITAL\CAFFEINE\PHENACETIN [Concomitant]
     Active Substance: ASPIRIN\BUTALBITAL\CAFFEINE\PHENACETIN
     Dosage: UNK
  7. FISH OIL [Concomitant]
     Active Substance: FISH OIL
     Dosage: 1200 MG
  8. HYDROCHLOROTHIAZIDE [Concomitant]
     Active Substance: HYDROCHLOROTHIAZIDE
     Dosage: 12.5 MG
  9. KETOCONAZOLE [Concomitant]
     Active Substance: KETOCONAZOLE
     Dosage: 2 %
  10. LAMOTRIGINE [Concomitant]
     Active Substance: LAMOTRIGINE
     Dosage: 100 MG
  11. LETROZOLE [Concomitant]
     Active Substance: LETROZOLE
     Dosage: 2.5 MG
  12. LEVOTHYROXINE [Concomitant]
     Active Substance: LEVOTHYROXINE
     Dosage: 0.125 MG
  13. LIDODERM [Concomitant]
     Active Substance: LIDOCAINE
     Dosage: 5 %
  14. LOTRISONE [Concomitant]
     Active Substance: BETAMETHASONE DIPROPIONATE\CLOTRIMAZOLE
     Dosage: UNK (15 GM)
  15. METOPROLOL SUCCINATE [Concomitant]
     Active Substance: METOPROLOL SUCCINATE
     Dosage: 25 MG
  16. MYRBETRIQ [Concomitant]
     Active Substance: MIRABEGRON
     Dosage: 25 MG
  17. ONDANSETRON [Concomitant]
     Active Substance: ONDANSETRON
     Dosage: 8 MG
  18. PANTOPRAZOLE [Concomitant]
     Active Substance: PANTOPRAZOLE
     Dosage: 40 MG
  19. ADEMETIONINE [Concomitant]
     Active Substance: ADEMETIONINE
     Dosage: 200 MG
  20. TRIAMCINOLONE [Concomitant]
     Active Substance: TRIAMCINOLONE
     Dosage: 0.1 %
  21. TRINTELLIX [Concomitant]
     Active Substance: VORTIOXETINE HYDROBROMIDE
     Dosage: 10 MG
  22. TYLENOL [Concomitant]
     Active Substance: ACETAMINOPHEN
     Dosage: 325 MG
  23. VALACYCLOVIR [Concomitant]
     Active Substance: VALACYCLOVIR HYDROCHLORIDE
     Dosage: 500 MG
  24. VIIBRYD [Concomitant]
     Active Substance: VILAZODONE HYDROCHLORIDE
     Dosage: 40 MG
  25. VITAMIN D NOS [Concomitant]
     Active Substance: VITAMIN D NOS
     Dosage: 1000 IU
  26. ALBUTEROL SULFATE\IPRATROPIUM BROMIDE [Concomitant]
     Active Substance: ALBUTEROL SULFATE\IPRATROPIUM BROMIDE
     Dosage: UNK (0.5/3MG INH)

REACTIONS (2)
  - Dry eye [Unknown]
  - Vision blurred [Unknown]

NARRATIVE: CASE EVENT DATE: 20230309
